FAERS Safety Report 5820146-0 (Version None)
Quarter: 2008Q3

REPORT INFORMATION
  Report Type: 
  Country: None (occurrence: None)
  Receive Date: 20080724
  Receipt Date: 20080711
  Transmission Date: 20090109
  Serious: Yes (Hospitalization, Other)
  Sender: FDA-Public Use
  Company Number: PHBS2006JP04354

PATIENT
  Age: 23 Year
  Sex: Female

DRUGS (2)
  1. NEORAL [Suspect]
     Indication: ALLOGENIC BONE MARROW TRANSPLANTATION THERAPY
     Dosage: 40 MG/D
     Route: 048
     Dates: start: 20020801
  2. PREDNISOLONE [Concomitant]
     Dosage: 20 MG/D
     Route: 048
     Dates: start: 20020501

REACTIONS (14)
  - ABDOMINAL DISTENSION [None]
  - ABDOMINAL PAIN [None]
  - ACUTE GRAFT VERSUS HOST DISEASE [None]
  - BRONCHIECTASIS [None]
  - BRONCHITIS CHRONIC [None]
  - COUGH [None]
  - DIARRHOEA [None]
  - DYSPNOEA EXERTIONAL [None]
  - LUNG DISORDER [None]
  - OBLITERATIVE BRONCHIOLITIS [None]
  - ORGANISING PNEUMONIA [None]
  - PNEUMATOSIS INTESTINALIS [None]
  - PNEUMOTHORAX [None]
  - PYREXIA [None]
